FAERS Safety Report 7775349-5 (Version None)
Quarter: 2011Q3

REPORT INFORMATION
  Report Type: 
  Country: None (occurrence: None)
  Receive Date: 20110923
  Receipt Date: 20110912
  Transmission Date: 20111222
  Serious: Yes (Hospitalization, Other)
  Sender: FDA-Public Use
  Company Number: PHHY2010BR13187

PATIENT
  Age: 74 Year
  Sex: Male

DRUGS (2)
  1. CLONAZEPAM [Concomitant]
     Indication: SLEEP DISORDER
     Dosage: UNK UKN, UNK
  2. EXFORGE [Suspect]
     Indication: HYPERTENSION
     Dosage: 1 DF(160/5 MG) DAILY
     Dates: start: 20081114

REACTIONS (5)
  - GASTROINTESTINAL NEOPLASM [None]
  - AGITATION [None]
  - NASAL POLYPS [None]
  - SOMNOLENCE [None]
  - DIZZINESS [None]
